FAERS Safety Report 12697617 (Version 1)
Quarter: 2016Q3

REPORT INFORMATION
  Report Type: Report from Study
  Country: BR (occurrence: BR)
  Receive Date: 20160830
  Receipt Date: 20160830
  Transmission Date: 20161109
  Serious: Yes (Other)
  Sender: FDA-Public Use
  Company Number: PHHY2016BR113777

PATIENT
  Sex: Female
  Weight: 75 kg

DRUGS (4)
  1. EXELON PATCH [Suspect]
     Active Substance: RIVASTIGMINE
     Dosage: PATCH 10 CM2
     Route: 062
  2. EXELON PATCH [Suspect]
     Active Substance: RIVASTIGMINE
     Dosage: PATCH 15 CM2
     Route: 062
  3. EXELON PATCH [Suspect]
     Active Substance: RIVASTIGMINE
     Indication: DEMENTIA ALZHEIMER^S TYPE
     Dosage: PATCH 5 CM2
     Route: 062
  4. EXELON [Suspect]
     Active Substance: RIVASTIGMINE TARTRATE
     Indication: DEMENTIA ALZHEIMER^S TYPE
     Route: 065

REACTIONS (11)
  - Panic disorder [Unknown]
  - Nausea [Unknown]
  - Fall [Unknown]
  - Epigastric discomfort [Unknown]
  - Depressed mood [Unknown]
  - Weight decreased [Unknown]
  - Mobility decreased [Unknown]
  - Asthenia [Unknown]
  - Vomiting [Unknown]
  - Fear [Unknown]
  - Syncope [Unknown]
